FAERS Safety Report 4869133-X (Version None)
Quarter: 2005Q4

REPORT INFORMATION
  Report Type: 
  Country: None (occurrence: None)
  Receive Date: 20051228
  Receipt Date: 20051228
  Transmission Date: 20060501
  Serious: No
  Sender: FDA-Public Use
  Company Number: None

PATIENT
  Sex: Female

DRUGS (1)
  1. RHOGAM [Suspect]
     Dosage: 300 MG IM
     Route: 030
     Dates: start: 20051216

REACTIONS (3)
  - DEVICE FAILURE [None]
  - DISCOMFORT [None]
  - PHARMACEUTICAL PRODUCT COMPLAINT [None]
